FAERS Safety Report 9350634 (Version 1)
Quarter: 2013Q2

REPORT INFORMATION
  Report Type: Spontaneous
  Country: US (occurrence: None)
  Receive Date: 20130613
  Receipt Date: 20130613
  Transmission Date: 20140414
  Serious: Yes (Hospitalization)
  Sender: FDA-Public Use
  Company Number: None

PATIENT
  Age: 68 Year
  Sex: Female
  Weight: 58.06 kg

DRUGS (1)
  1. PREDNISONE [Suspect]
     Indication: SEGMENTED HYALINISING VASCULITIS
     Route: 048
     Dates: start: 20130519, end: 20130524

REACTIONS (4)
  - Abdominal pain lower [None]
  - Vomiting [None]
  - Fall [None]
  - Clostridium difficile colitis [None]
